FAERS Safety Report 6486361-0 (Version None)
Quarter: 2009Q4

REPORT INFORMATION
  Report Type: 
  Country: None (occurrence: None)
  Receive Date: 20091207
  Receipt Date: 20091130
  Transmission Date: 20100525
  Serious: Yes (Hospitalization)
  Sender: FDA-Public Use
  Company Number: 2009SP036133

PATIENT
  Age: 74 Year
  Sex: Female
  Weight: 54.8 kg

DRUGS (6)
  1. TEMOZOLOMIDE [Suspect]
     Indication: ACUTE MYELOID LEUKAEMIA
     Dosage: 100 MG/M2;QD;PO; 200 MG/M2;QD;PO
     Route: 048
     Dates: start: 20091002, end: 20091015
  2. TEMOZOLOMIDE [Suspect]
     Indication: ACUTE MYELOID LEUKAEMIA
     Dosage: 100 MG/M2;QD;PO; 200 MG/M2;QD;PO
     Route: 048
     Dates: start: 20091016, end: 20091022
  3. SYNTHROID (CON.) [Concomitant]
  4. LIPITOR (CON.) [Concomitant]
  5. AUGMENTIN /00756801/ (CON.) [Concomitant]
  6. TYLENOL          /00020001/ (CON.) [Concomitant]

REACTIONS (13)
  - BLOOD PRESSURE DECREASED [None]
  - CHILLS [None]
  - CULTURE URINE POSITIVE [None]
  - FACIAL PAIN [None]
  - FEBRILE NEUTROPENIA [None]
  - FEELING COLD [None]
  - HAEMOGLOBIN DECREASED [None]
  - INFECTION [None]
  - NASOPHARYNGITIS [None]
  - ORAL PAIN [None]
  - PANCYTOPENIA [None]
  - SINUSITIS [None]
  - TREMOR [None]
